FAERS Safety Report 24123866 (Version 1)
Quarter: 2024Q3

REPORT INFORMATION
  Report Type: Spontaneous
  Country: US (occurrence: US)
  Receive Date: 20240723
  Receipt Date: 20240723
  Transmission Date: 20241016
  Serious: No
  Sender: OTSUKA
  Company Number: US-OTSUKA-2024_011957

PATIENT
  Sex: Male

DRUGS (2)
  1. REXULTI [Suspect]
     Active Substance: BREXPIPRAZOLE
     Indication: Adjuvant therapy
     Dosage: 3 MG, QD
     Route: 065
     Dates: end: 202401
  2. REXULTI [Suspect]
     Active Substance: BREXPIPRAZOLE
     Indication: Antidepressant therapy

REACTIONS (1)
  - Personality change [Unknown]
